FAERS Safety Report 6216775-5 (Version None)
Quarter: 2009Q2

REPORT INFORMATION
  Report Type: 
  Country: None (occurrence: None)
  Receive Date: 20090605
  Receipt Date: 20090525
  Transmission Date: 20091009
  Serious: Yes (Hospitalization)
  Sender: FDA-Public Use
  Company Number: SE-ELI_LILLY_AND_COMPANY-SE200905005896

PATIENT
  Age: 52 Year
  Sex: Female

DRUGS (3)
  1. HUMALOG [Suspect]
     Indication: DIABETES MELLITUS
  2. LANTUS [Concomitant]
     Indication: DIABETES MELLITUS
     Dosage: 13 IU, DAILY (1/D)
     Route: 058
     Dates: start: 20020901, end: 20030310
  3. INSULATARD [Concomitant]
     Indication: DIABETES MELLITUS
     Dates: start: 20030101

REACTIONS (3)
  - BLOOD GLUCOSE ABNORMAL [None]
  - DERMATITIS [None]
  - URTICARIA [None]
